FAERS Safety Report 12991729 (Version 1)
Quarter: 2016Q4

REPORT INFORMATION
  Report Type: Spontaneous
  Country: AU (occurrence: AU)
  Receive Date: 20161201
  Receipt Date: 20161201
  Transmission Date: 20170207
  Serious: Yes (Hospitalization)
  Sender: FDA-Public Use
  Company Number: AU-ELI_LILLY_AND_COMPANY-AU201611010816

PATIENT
  Age: 68 Year
  Sex: Female

DRUGS (1)
  1. HUMALOG MIX75/25 [Suspect]
     Active Substance: INSULIN LISPRO
     Indication: PRODUCT USED FOR UNKNOWN INDICATION
     Dosage: UNK, UNKNOWN
     Route: 065
     Dates: start: 2011

REACTIONS (8)
  - Coma [Unknown]
  - Fall [Unknown]
  - Incorrect dose administered [Unknown]
  - Head injury [Unknown]
  - Blood glucose increased [Unknown]
  - Influenza [Unknown]
  - Drug dose omission [Unknown]
  - Infection [Unknown]

NARRATIVE: CASE EVENT DATE: 201609
